FAERS Safety Report 4642931-3 (Version None)
Quarter: 2005Q2

REPORT INFORMATION
  Report Type: 
  Country: None (occurrence: None)
  Receive Date: 20050421
  Receipt Date: 20050222
  Transmission Date: 20051028
  Serious: Yes (Other)
  Sender: FDA-Public Use
  Company Number: 2005016870

PATIENT
  Sex: Female

DRUGS (1)
  1. DOSTINEX [Suspect]
     Indication: PITUITARY TUMOUR BENIGN
     Dosage: 0.25 MG (0.25 MG, 1/2 TABLET DAILY), ORAL
     Route: 048
     Dates: start: 20040501

REACTIONS (3)
  - DEAFNESS [None]
  - DIZZINESS [None]
  - TINNITUS [None]
